FAERS Safety Report 8320521-9 (Version None)
Quarter: 2012Q2

REPORT INFORMATION
  Report Type: 
  Country: None (occurrence: None)
  Receive Date: 20120430
  Receipt Date: 20120423
  Transmission Date: 20120825
  Serious: Yes (Other)
  Sender: FDA-Public Use
  Company Number: BR-PFIZER INC-2012100972

PATIENT
  Age: 54 Year
  Sex: Female

DRUGS (4)
  1. XALATAN [Suspect]
     Indication: INTRAOCULAR PRESSURE INCREASED
     Dosage: 3 UG, 1X/DAY (ONE DROP IN EACH EYE, ONCE DAILY)
     Route: 047
     Dates: start: 19950423
  2. BENICAR [Concomitant]
     Indication: BLOOD PRESSURE
     Dosage: 40 MG, 1X/DAY
     Dates: start: 20090101
  3. CRESTOR [Concomitant]
     Indication: BLOOD CHOLESTEROL
     Dosage: UNKNOWN DOSE, ONCE IN THE EVENING
     Dates: start: 20090101
  4. SOMALGIN [Concomitant]
     Indication: BLOOD DISORDER
     Dosage: UNKNOWN DOSE, ONCE DAILY
     Dates: start: 20090101

REACTIONS (4)
  - FALL [None]
  - NEPHROLITHIASIS [None]
  - CARDIAC DISORDER [None]
  - VASCULAR GRAFT OCCLUSION [None]
